FAERS Safety Report 14845033 (Version 1)
Quarter: 2018Q2

REPORT INFORMATION
  Report Type: Spontaneous
  Country: JP (occurrence: JP)
  Receive Date: 20180504
  Receipt Date: 20180504
  Transmission Date: 20180711
  Serious: Yes (Other)
  Sender: FDA-Public Use
  Company Number: JP-UCBSA-029135

PATIENT
  Age: 6 Year
  Sex: Female

DRUGS (3)
  1. E KEPPRA [Suspect]
     Active Substance: LEVETIRACETAM
     Indication: PRODUCT USED FOR UNKNOWN INDICATION
     Dosage: 200MG X 2/DAY (CRUSHED)
     Route: 048
     Dates: start: 20110228, end: 20110301
  2. SELENICA-R [Concomitant]
     Active Substance: VALPROATE SODIUM
     Route: 048
  3. MYSTAN [Concomitant]
     Active Substance: CLOBAZAM
     Route: 048

REACTIONS (2)
  - Medication error [Unknown]
  - Epilepsy [Recovered/Resolved]

NARRATIVE: CASE EVENT DATE: 20110228
